FAERS Safety Report 8448603-1 (Version None)
Quarter: 2012Q2

REPORT INFORMATION
  Report Type: 
  Country: None (occurrence: None)
  Receive Date: 20120619
  Receipt Date: 20120611
  Transmission Date: 20120825
  Serious: Yes (Other)
  Sender: FDA-Public Use
  Company Number: PHHY2012JP051308

PATIENT
  Age: 84 Year
  Sex: Male

DRUGS (2)
  1. HIRUDOID [Concomitant]
     Route: 061
  2. EXELON [Suspect]
     Route: 062

REACTIONS (3)
  - RASH [None]
  - INFECTION [None]
  - PIGMENTATION DISORDER [None]
